FAERS Safety Report 9421479 (Version 1)
Quarter: 2013Q3

REPORT INFORMATION
  Report Type: Spontaneous
  Country: NL (occurrence: NL)
  Receive Date: 20130726
  Receipt Date: 20130726
  Transmission Date: 20140515
  Serious: Yes (Death, Life-Threatening, Hospitalization)
  Sender: FDA-Public Use
  Company Number: 2013SP005392

PATIENT
  Age: 58 Year
  Sex: Female

DRUGS (12)
  1. VANCOMYCIN [Suspect]
     Indication: ABSCESS
  2. PIPERACILLIN/TAZOBACTAM [Suspect]
     Indication: ABSCESS
  3. AMOXICILLIN [Suspect]
     Indication: ABSCESS
  4. CIPROFLOXACIN [Suspect]
     Indication: ABSCESS
  5. CEFUROXIME [Suspect]
     Indication: ABSCESS
  6. LINEZOLID [Suspect]
     Indication: PRODUCT USED FOR UNKNOWN INDICATION
  7. METRONIDAZOLE [Suspect]
     Indication: ABSCESS
  8. SULFAMETHOXAZOLE [Suspect]
     Indication: PRODUCT USED FOR UNKNOWN INDICATION
  9. TRIMETHOPRIM [Suspect]
     Indication: PRODUCT USED FOR UNKNOWN INDICATION
  10. LIDOCAINE [Suspect]
     Indication: PRODUCT USED FOR UNKNOWN INDICATION
  11. PREDNISONE [Concomitant]
     Indication: PRODUCT USED FOR UNKNOWN INDICATION
  12. CLEMASTINE [Concomitant]
     Indication: PRODUCT USED FOR UNKNOWN INDICATION

REACTIONS (21)
  - Drug reaction with eosinophilia and systemic symptoms [Fatal]
  - Pyrexia [Not Recovered/Not Resolved]
  - Rash generalised [Not Recovered/Not Resolved]
  - Rash maculo-papular [Not Recovered/Not Resolved]
  - Eosinophilia [Not Recovered/Not Resolved]
  - Erythema [Not Recovered/Not Resolved]
  - Dermatitis [Not Recovered/Not Resolved]
  - Dermatitis exfoliative [Not Recovered/Not Resolved]
  - Blister [Not Recovered/Not Resolved]
  - Swelling [Not Recovered/Not Resolved]
  - Erythema [Not Recovered/Not Resolved]
  - Renal failure [Fatal]
  - Hypotension [Not Recovered/Not Resolved]
  - Oliguria [Not Recovered/Not Resolved]
  - Hypoperfusion [Not Recovered/Not Resolved]
  - Respiratory failure [Not Recovered/Not Resolved]
  - Hypoxia [Not Recovered/Not Resolved]
  - Septic shock [Fatal]
  - Pneumonia [Fatal]
  - Livedo reticularis [Not Recovered/Not Resolved]
  - Drug hypersensitivity [Not Recovered/Not Resolved]
